FAERS Safety Report 5013102-6 (Version None)
Quarter: 2006Q2

REPORT INFORMATION
  Report Type: 
  Country: None (occurrence: None)
  Receive Date: 20060530
  Receipt Date: 20060223
  Transmission Date: 20061013
  Serious: No
  Sender: FDA-Public Use
  Company Number: US-GLAXOSMITHKLINE-A0594992A

PATIENT
  Age: 42 Year
  Sex: Female

DRUGS (2)
  1. WELLBUTRIN XL [Suspect]
     Indication: DEPRESSION
     Dosage: 150MG PER DAY
     Route: 048
     Dates: start: 20051101, end: 20051201
  2. NO CONCURRENT MEDICATION [Concomitant]

REACTIONS (10)
  - CRYING [None]
  - DEPRESSION [None]
  - DYSMENORRHOEA [None]
  - HEADACHE [None]
  - LIBIDO DECREASED [None]
  - MEMORY IMPAIRMENT [None]
  - MENSTRUAL DISORDER [None]
  - POLYMENORRHOEA [None]
  - UTERINE LEIOMYOMA [None]
  - VISION BLURRED [None]
